FAERS Safety Report 4721027-6 (Version None)
Quarter: 2005Q3

REPORT INFORMATION
  Report Type: 
  Country: None (occurrence: None)
  Receive Date: 20050719
  Receipt Date: 20041029
  Transmission Date: 20060218
  Serious: Yes (Hospitalization, Other)
  Sender: FDA-Public Use
  Company Number: 2004242269US

PATIENT
  Age: 59 Year
  Sex: Male
  Weight: 99.8 kg

DRUGS (10)
  1. CELEBREX [Suspect]
     Indication: OSTEOARTHRITIS
     Dosage: 200 MG, BID, ORAL
     Route: 048
     Dates: start: 20010101
  2. LISINOPRIL [Concomitant]
  3. GINKOGINK (GINKGO BILBOBA EXT4RACT) [Concomitant]
  4. TERAZOSIN HCL [Concomitant]
  5. PROSCAR [Concomitant]
  6. NEURONTIN [Concomitant]
  7. OMEPRAZOLE [Concomitant]
  8. RANITIDINE [Concomitant]
  9. NIACINAMIDE [Concomitant]
  10. ASPIRIN [Concomitant]

REACTIONS (1)
  - MYOCARDIAL INFARCTION [None]
